FAERS Safety Report 8054089-1 (Version None)
Quarter: 2012Q1

REPORT INFORMATION
  Report Type: 
  Country: None (occurrence: None)
  Receive Date: 20120118
  Receipt Date: 20110831
  Transmission Date: 20120608
  Serious: Yes (Other)
  Sender: FDA-Public Use
  Company Number: PHHY2011IT77964

PATIENT
  Age: 19 Year
  Sex: Male

DRUGS (9)
  1. STEROIDS NOS [Suspect]
     Indication: CHRONIC GRAFT VERSUS HOST DISEASE
     Dosage: UNK UKN, UNK
  2. CYCLOSPORINE [Suspect]
     Dosage: UNK UKN, UNK
  3. MYCOPHENOLATE MOFETIL [Suspect]
     Indication: CHRONIC GRAFT VERSUS HOST DISEASE
     Dosage: UNK UKN, UNK
  4. RITUXIMAB [Suspect]
     Indication: CHRONIC GRAFT VERSUS HOST DISEASE
     Dosage: UNK UKN, UNK
  5. IMATINIB MESYLATE [Suspect]
     Indication: CHRONIC GRAFT VERSUS HOST DISEASE
     Dosage: UNK UKN, UNK
  6. CYCLOSPORINE [Suspect]
     Indication: CHRONIC GRAFT VERSUS HOST DISEASE
     Dosage: UNK UKN, UNK
  7. DONOR-DERIVED JCV AG-SPECIFIC CTLS [Concomitant]
     Dosage: UNK UKN, UNK
  8. BUDESONIDE [Suspect]
     Indication: CHRONIC GRAFT VERSUS HOST DISEASE
     Dosage: UNK UKN, UNK
  9. METHOTREXATE [Suspect]
     Indication: CHRONIC GRAFT VERSUS HOST DISEASE
     Dosage: UNK UKN, UNK

REACTIONS (17)
  - CHILLS [None]
  - APHASIA [None]
  - APRAXIA [None]
  - JC VIRUS INFECTION [None]
  - MONOPARESIS [None]
  - PANIC ATTACK [None]
  - PROGRESSIVE MULTIFOCAL LEUKOENCEPHALOPATHY [None]
  - CATARACT [None]
  - AGNOSIA [None]
  - MENTAL IMPAIRMENT [None]
  - COGNITIVE DISORDER [None]
  - GAIT DISTURBANCE [None]
  - TREMOR [None]
  - AMNESIA [None]
  - VISUAL IMPAIRMENT [None]
  - VISUAL FIELD DEFECT [None]
  - MOTOR DYSFUNCTION [None]
